FAERS Safety Report 19650815 (Version 1)
Quarter: 2021Q3

REPORT INFORMATION
  Report Type: Report from Study
  Country: DE (occurrence: DE)
  Receive Date: 20210802
  Receipt Date: 20210802
  Transmission Date: 20211014
  Serious: Yes (Death, Hospitalization, Other)
  Sender: FDA-Public Use
  Company Number: DE-JNJFOC-20210326660

PATIENT
  Age: 87 Year
  Sex: Female
  Weight: 60 kg

DRUGS (1)
  1. RIVAROXABAN [Suspect]
     Active Substance: RIVAROXABAN
     Indication: ATRIAL FIBRILLATION
     Dosage: 20 MG, QD
     Route: 048

REACTIONS (5)
  - Thalamus haemorrhage [Fatal]
  - Aphasia [Fatal]
  - Hypertension [Unknown]
  - Cerebral ischaemia [Fatal]
  - Personality change [Fatal]

NARRATIVE: CASE EVENT DATE: 20210304
